FAERS Safety Report 8090022-4 (Version None)
Quarter: 2012Q1

REPORT INFORMATION
  Report Type: 
  Country: None (occurrence: None)
  Receive Date: 20120129
  Receipt Date: 20111031
  Transmission Date: 20120608
  Serious: No
  Sender: FDA-Public Use
  Company Number: US-ABBOTT-11P-163-0869777-00

PATIENT
  Age: 27 Year
  Sex: Female

DRUGS (5)
  1. AMBIEN [Concomitant]
     Indication: INSOMNIA
  2. HUMIRA [Suspect]
     Indication: CROHN'S DISEASE
  3. SOMA [Concomitant]
     Indication: HYPOTONIA
     Dosage: AT BEDTIME
  4. KLONOPIN [Concomitant]
     Indication: ANXIETY
  5. LORTAB [Concomitant]
     Indication: MIGRAINE
     Dosage: 75/500MG

REACTIONS (9)
  - INFECTION [None]
  - MIGRAINE [None]
  - CHILLS [None]
  - FEELING ABNORMAL [None]
  - INSOMNIA [None]
  - SLEEP DISORDER [None]
  - PAIN [None]
  - OROPHARYNGEAL PAIN [None]
  - EAR DISCOMFORT [None]
